FAERS Safety Report 22692141 (Version 9)
Quarter: 2023Q4

REPORT INFORMATION
  Report Type: Report from Study
  Country: RU (occurrence: RU)
  Receive Date: 20230711
  Receipt Date: 20231215
  Transmission Date: 20240109
  Serious: Yes (Other)
  Sender: FDA-Public Use
  Company Number: RU-002147023-NVSC2023RU142608

PATIENT
  Age: 3 Month
  Sex: Male
  Weight: 5.5 kg

DRUGS (5)
  1. ZOLGENSMA [Suspect]
     Active Substance: ONASEMNOGENE ABEPARVOVEC-XIOI
     Indication: Spinal muscular atrophy
     Dosage: 35.8 ML, ONCE/SINGLE
     Route: 041
     Dates: start: 20230525, end: 20230525
  2. CHOLECALCIFEROL [Concomitant]
     Active Substance: CHOLECALCIFEROL
     Indication: Product used for unknown indication
     Dosage: 500 IU - 1000 IU, A DAY (ONCE PER DAY IN THE MORNING)
     Route: 065
  3. SIMETHICONE (DIMETHICONE) [Concomitant]
     Active Substance: DIMETHICONE
     Indication: Product used for unknown indication
     Dosage: 10 DRP (DROPS, AFTER EVERY FEEDING)
     Route: 048
  4. PREDNISOLONE [Concomitant]
     Active Substance: PREDNISOLONE
     Indication: Product used for unknown indication
     Dosage: 1 TABLET PLUS 1/4 TABLET, ONCE A DAY IN THE MORNING
     Route: 065
     Dates: start: 20230524
  5. ESOMEPRAZOLE [Concomitant]
     Active Substance: ESOMEPRAZOLE
     Indication: Product used for unknown indication
     Dosage: 1/2 SACHET, 1 TIME PER DAY AT BEDTIME
     Route: 065

REACTIONS (10)
  - Decreased appetite [Recovered/Resolved]
  - Irritability [Recovered/Resolved]
  - Blood lactate dehydrogenase increased [Recovered/Resolved]
  - Prothrombin time prolonged [Recovered/Resolved]
  - Leukocytosis [Recovered/Resolved]
  - Platelet count increased [Unknown]
  - Monocytosis [Unknown]
  - Body temperature increased [Recovered/Resolved]
  - Neutrophilia [Unknown]
  - Aspartate aminotransferase increased [Unknown]

NARRATIVE: CASE EVENT DATE: 20230526
